FAERS Safety Report 14922336 (Version 2)
Quarter: 2020Q3

REPORT INFORMATION
  Report Type: Report from Study
  Country: IT (occurrence: IT)
  Receive Date: 20180522
  Receipt Date: 20180604
  Transmission Date: 20201105
  Serious: Yes (Hospitalization, Other)
  Sender: FDA-Public Use
  Company Number: IT-ROCHE-2066889

PATIENT
  Age: 74 Year
  Sex: Male
  Weight: 48 kg

DRUGS (2)
  1. ALECTINIB. [Suspect]
     Active Substance: ALECTINIB
     Indication: NON-SMALL CELL LUNG CANCER
     Route: 048
     Dates: start: 20171016, end: 20180104
  2. ALECTINIB. [Suspect]
     Active Substance: ALECTINIB
     Route: 048
     Dates: start: 20180118, end: 20180406

REACTIONS (5)
  - Ventricular hypokinesia [Unknown]
  - Respiratory failure [Recovered/Resolved with Sequelae]
  - Pleural effusion [Unknown]
  - Congestive cardiomyopathy [Unknown]
  - Asthenia [Recovering/Resolving]

NARRATIVE: CASE EVENT DATE: 20171212
